FAERS Safety Report 5902317-8 (Version None)
Quarter: 2008Q3

REPORT INFORMATION
  Report Type: 
  Country: None (occurrence: None)
  Receive Date: 20080929
  Receipt Date: 20080916
  Transmission Date: 20090109
  Serious: No
  Sender: FDA-Public Use
  Company Number: US-B.I. PHARMACEUTICALS,INC./RIDGEFIELD-2008-BP-13742BP

PATIENT
  Age: 84 Year
  Sex: Female

DRUGS (4)
  1. CATAPRES [Suspect]
     Indication: HYPERTENSION
     Dosage: .6MG
     Route: 048
  2. DIOVAN [Concomitant]
     Indication: HYPERTENSION
     Dosage: 320MG
  3. CARDIZEM [Concomitant]
     Indication: HYPERTENSION
  4. CORGARD [Concomitant]
     Dosage: 60MG

REACTIONS (4)
  - BLINDNESS [None]
  - DRUG INEFFECTIVE [None]
  - HYPERTENSION [None]
  - THERAPEUTIC REACTION TIME DECREASED [None]
